FAERS Safety Report 8549221-7 (Version None)
Quarter: 2012Q3

REPORT INFORMATION
  Report Type: 
  Country: None (occurrence: None)
  Receive Date: 20120730
  Receipt Date: 20120719
  Transmission Date: 20120928
  Serious: Yes (Other)
  Sender: FDA-Public Use
  Company Number: JP-VERTEX PHARMACEUTICALS INC.-AE-2012-010865

PATIENT
  Age: 66 Year
  Sex: Female

DRUGS (9)
  1. TELAVIC (TELAPREVIR) [Suspect]
     Route: 048
     Dates: start: 20120207, end: 20120418
  2. PEG-INTRON [Concomitant]
     Route: 058
     Dates: start: 20120328, end: 20120703
  3. TELAVIC (TELAPREVIR) [Suspect]
     Indication: HEPATITIS C
     Route: 048
     Dates: start: 20120124, end: 20120206
  4. ACETAMINOPHEN [Concomitant]
     Route: 048
     Dates: start: 20120124, end: 20120709
  5. PEG-INTRON [Concomitant]
     Indication: HEPATITIS C
     Route: 058
     Dates: start: 20120124, end: 20120327
  6. TSUMURA DAIKENCHUTO EXTRACT GRANULES FOR ETHICAL USE [Concomitant]
     Route: 048
     Dates: end: 20120322
  7. RIBAVIRIN [Concomitant]
     Indication: HEPATITIS C
     Route: 048
     Dates: start: 20120124, end: 20120709
  8. MAGLAX [Concomitant]
     Route: 048
  9. ALLOPURINOL [Concomitant]
     Route: 048
     Dates: start: 20120207, end: 20120501

REACTIONS (1)
  - MELAENA [None]
